FAERS Safety Report 6989345-9 (Version None)
Quarter: 2010Q3

REPORT INFORMATION
  Report Type: 
  Country: None (occurrence: None)
  Receive Date: 20100916
  Receipt Date: 20091123
  Transmission Date: 20110219
  Serious: Yes (Other)
  Sender: FDA-Public Use
  Company Number: US-PFIZER INC-2009301966

PATIENT
  Sex: Male

DRUGS (7)
  1. LYRICA [Suspect]
     Indication: POST HERPETIC NEURALGIA
     Dosage: 25 MG, 2X/DAY
     Route: 048
     Dates: start: 20091118
  2. LIDOCAINE [Suspect]
     Indication: POST HERPETIC NEURALGIA
     Route: 061
     Dates: end: 20091122
  3. PROZAC [Concomitant]
     Indication: MYOCARDIAL INFARCTION
     Dosage: 20 MG, 1X/DAY
     Route: 048
  4. CRESTOR [Concomitant]
     Dosage: 20 MG, 1X/DAY
     Route: 048
  5. ACCUPRIL [Concomitant]
     Indication: HEART RATE
     Dosage: 5 MG, UNK
     Route: 048
  6. NIASPAN [Concomitant]
     Dosage: 1000 MG, 1X/DAY
     Route: 048
  7. COREG [Concomitant]
     Indication: BLOOD PRESSURE
     Dosage: 25 MG, 2X/DAY
     Route: 048

REACTIONS (2)
  - PRURITUS [None]
  - SKIN LESION [None]
